FAERS Safety Report 4774163-2 (Version None)
Quarter: 2005Q3

REPORT INFORMATION
  Report Type: 
  Country: None (occurrence: None)
  Receive Date: 20050914
  Receipt Date: 20050407
  Transmission Date: 20060218
  Serious: Yes (Hospitalization)
  Sender: FDA-Public Use
  Company Number: 163-20785-05040209

PATIENT
  Age: 57 Year
  Sex: Male

DRUGS (9)
  1. THALOMID [Suspect]
     Indication: MULTIPLE MYELOMA
     Dosage: 100 MG, DAILY, ORAL
     Route: 048
     Dates: start: 20041215
  2. VINCRISTINE [Suspect]
     Indication: MULTIPLE MYELOMA
     Dosage: FOR 4 DAYS, EVERY 4 WEEKS
     Dates: start: 20041215
  3. VINCRISTINE [Suspect]
     Indication: MULTIPLE MYELOMA
     Dosage: FOR 4 DAYS, EVERY 4 WEEKS
     Dates: start: 20041215
  4. ADRIAMYCIN PFS [Suspect]
     Indication: MULTIPLE MYELOMA
     Dosage: FOR 4 DAYS, EVERY 4 WEEKS
     Dates: start: 20041215
  5. TRICOR [Concomitant]
  6. ZETIA [Concomitant]
  7. ATENOLOL [Concomitant]
  8. WARFARIN SODIUM [Concomitant]
  9. PROTONIX [Concomitant]

REACTIONS (1)
  - FEBRILE NEUTROPENIA [None]
